FAERS Safety Report 8016722-X (Version None)
Quarter: 2012Q1

REPORT INFORMATION
  Report Type: 
  Country: None (occurrence: None)
  Receive Date: 20120102
  Receipt Date: 20111227
  Transmission Date: 20120608
  Serious: Yes (Hospitalization)
  Sender: FDA-Public Use
  Company Number: AR-BIOGENIDEC-2011BI043835

PATIENT
  Age: 35 Year
  Sex: Female

DRUGS (10)
  1. PLENICA (PREGABALIN) [Concomitant]
  2. IBUPIRAC (IBUPROFEN) [Concomitant]
  3. VALIUM [Concomitant]
  4. ALPLAX (ALPRAZOLAM) [Concomitant]
  5. TANVIMIL (VITAMINS) [Concomitant]
  6. PEPTAZOL (PANTOPRAZOLE) [Concomitant]
  7. ATENIX (SERTRALINE) [Concomitant]
  8. DITROPAN [Concomitant]
  9. AVONEX [Suspect]
     Indication: MULTIPLE SCLEROSIS
     Route: 030
     Dates: start: 20090201
  10. LIORESAL [Concomitant]

REACTIONS (3)
  - ILEUS [None]
  - QUADRIPARESIS [None]
  - ESCHAR [None]
